FAERS Safety Report 5413977-2 (Version None)
Quarter: 2007Q3

REPORT INFORMATION
  Report Type: 
  Country: None (occurrence: None)
  Receive Date: 20070814
  Receipt Date: 20070801
  Transmission Date: 20080115
  Serious: Yes (Life-Threatening, Hospitalization)
  Sender: FDA-Public Use
  Company Number: FR-ELI_LILLY_AND_COMPANY-FR200708000599

PATIENT
  Age: 54 Year
  Sex: Female

DRUGS (5)
  1. PROZAC [Suspect]
     Indication: DEPRESSION
     Dosage: 20 MG, DAILY (1/D)
     Route: 048
     Dates: start: 20070531, end: 20070604
  2. SOLIAN [Concomitant]
     Indication: ABNORMAL BEHAVIOUR
     Dosage: 50 MG, DAILY (1/D)
     Route: 048
     Dates: start: 20070512, end: 20070606
  3. RISPERDAL [Concomitant]
     Indication: ABNORMAL BEHAVIOUR
     Dosage: 1.5 ML, DAILY (1/D)
     Route: 048
     Dates: start: 20070606
  4. VALIUM [Concomitant]
     Indication: ANXIETY
     Route: 048
     Dates: start: 20070523
  5. HEPT-A-MYL [Concomitant]
     Indication: HYPOTENSION
     Dosage: 1 D/F, 3/D
     Route: 048
     Dates: start: 20070514

REACTIONS (2)
  - ALTERED STATE OF CONSCIOUSNESS [None]
  - STATUS EPILEPTICUS [None]
